FAERS Safety Report 23997478 (Version 1)
Quarter: 2024Q2

REPORT INFORMATION
  Report Type: Spontaneous
  Country: US (occurrence: US)
  Receive Date: 20240621
  Receipt Date: 20240621
  Transmission Date: 20240716
  Serious: Yes (Hospitalization)
  Sender: FDA-Public Use
  Company Number: US-BRAEBURN-US-BRA-24-000354

PATIENT

DRUGS (1)
  1. BRIXADI [Suspect]
     Active Substance: BUPRENORPHINE
     Indication: Drug use disorder
     Dosage: 128 MILLIGRAM, MONTHLY
     Route: 065
     Dates: start: 20240405

REACTIONS (4)
  - Pain [Not Recovered/Not Resolved]
  - Lethargy [Not Recovered/Not Resolved]
  - Drug level increased [Not Recovered/Not Resolved]
  - Nausea [Not Recovered/Not Resolved]
